FAERS Safety Report 15286374 (Version 17)
Quarter: 2024Q3

REPORT INFORMATION
  Report Type: Spontaneous
  Country: FR (occurrence: FR)
  Receive Date: 20180816
  Receipt Date: 20240923
  Transmission Date: 20241017
  Serious: Yes (Death, Life-Threatening, Congenital Anomaly, Other)
  Sender: MYLAN
  Company Number: None

PATIENT
  Age: 89 Year
  Sex: Female
  Weight: 68 kg

DRUGS (27)
  1. BISOPROLOL [Suspect]
     Active Substance: BISOPROLOL\BISOPROLOL FUMARATE
     Indication: Hypertension
     Dosage: UNK
     Route: 048
  2. BISOPROLOL [Suspect]
     Active Substance: BISOPROLOL\BISOPROLOL FUMARATE
     Dosage: UNK
     Route: 048
     Dates: start: 20171025, end: 20171025
  3. BISOPROLOL [Suspect]
     Active Substance: BISOPROLOL\BISOPROLOL FUMARATE
     Dosage: UNK UNK, QD
     Route: 048
     Dates: end: 20171025
  4. BISOPROLOL [Suspect]
     Active Substance: BISOPROLOL\BISOPROLOL FUMARATE
     Dosage: 1 DOSAGE FORM, QD
     Route: 048
     Dates: end: 20171025
  5. METFORMIN [Suspect]
     Active Substance: METFORMIN HYDROCHLORIDE
     Indication: Type 2 diabetes mellitus
     Dosage: 2 DF, QD
     Route: 048
  6. METFORMIN [Suspect]
     Active Substance: METFORMIN HYDROCHLORIDE
     Dosage: 2 DF, QD
     Route: 048
     Dates: start: 20171025, end: 20171025
  7. METFORMIN [Suspect]
     Active Substance: METFORMIN HYDROCHLORIDE
     Dosage: 2 DF, QD
     Route: 048
     Dates: end: 20171025
  8. FUROSEMIDE [Suspect]
     Active Substance: FUROSEMIDE
     Indication: Hypertension
     Dosage: UNK
     Route: 048
     Dates: start: 20171025, end: 20171025
  9. FUROSEMIDE [Suspect]
     Active Substance: FUROSEMIDE
     Dosage: UNK
     Route: 048
     Dates: end: 20171025
  10. RAMIPRIL [Suspect]
     Active Substance: RAMIPRIL
     Indication: Anxiety
     Dosage: 1 DF, QD
     Route: 048
     Dates: end: 20171025
  11. RAMIPRIL [Suspect]
     Active Substance: RAMIPRIL
     Indication: Hypertension
     Dosage: 1.25 MILLIGRAM, QD
     Route: 048
     Dates: start: 20171025, end: 20171025
  12. RAMIPRIL [Suspect]
     Active Substance: RAMIPRIL
     Dosage: 1.25 MILLIGRAM, QD
     Route: 048
     Dates: end: 20171025
  13. RAMIPRIL [Suspect]
     Active Substance: RAMIPRIL
     Dosage: 1.25 DF, 1X/DAY
     Route: 048
  14. RAMIPRIL [Suspect]
     Active Substance: RAMIPRIL
     Dosage: 1.25 DF, QD
     Route: 048
     Dates: start: 20171025
  15. PANTOPRAZOLE [Suspect]
     Active Substance: PANTOPRAZOLE
     Indication: Product used for unknown indication
     Dosage: UNK
     Route: 048
     Dates: start: 20171025, end: 20171025
  16. PANTOPRAZOLE [Suspect]
     Active Substance: PANTOPRAZOLE
     Dosage: UNK
     Route: 048
  17. PANTOPRAZOLE [Suspect]
     Active Substance: PANTOPRAZOLE
     Dosage: UNK
     Route: 048
     Dates: end: 20171025
  18. PANTOPRAZOLE [Suspect]
     Active Substance: PANTOPRAZOLE
     Dosage: UNK
     Route: 048
     Dates: end: 20171025
  19. ALPRAZOLAM [Suspect]
     Active Substance: ALPRAZOLAM
     Indication: Anxiety
     Dosage: UNK
     Route: 048
     Dates: start: 20171025, end: 20171025
  20. ALPRAZOLAM [Suspect]
     Active Substance: ALPRAZOLAM
     Dosage: UNK
     Route: 048
  21. ALPRAZOLAM [Suspect]
     Active Substance: ALPRAZOLAM
     Dosage: 1 DOSAGE FORM, QD DOSE 1, QD (UNK, 1X/DAY)
     Route: 048
     Dates: end: 20171025
  22. FLUINDIONE [Suspect]
     Active Substance: FLUINDIONE
     Indication: Anticoagulant therapy
     Dosage: UNK
     Route: 048
     Dates: start: 20171025, end: 20171025
  23. FLUINDIONE [Suspect]
     Active Substance: FLUINDIONE
     Dosage: 1 DOSAGE FORM, QD DOSE 1, 1X/DAY)
     Route: 048
     Dates: end: 20171025
  24. ESIDREX [Suspect]
     Active Substance: HYDROCHLOROTHIAZIDE
     Indication: Hypertension
     Dosage: 1 DF, QD
     Route: 048
  25. ESIDREX [Suspect]
     Active Substance: HYDROCHLOROTHIAZIDE
     Dosage: 1 DF, QD
     Route: 048
     Dates: start: 20171025, end: 20171025
  26. ESIDREX [Suspect]
     Active Substance: HYDROCHLOROTHIAZIDE
     Dosage: 1 DF, QD
     Route: 048
     Dates: end: 20171025
  27. METFORMIN [Suspect]
     Active Substance: METFORMIN HYDROCHLORIDE
     Indication: Product used for unknown indication
     Dosage: 2 DOSAGE FORM, QD
     Route: 048
     Dates: start: 20171025

REACTIONS (6)
  - Anaemia [Fatal]
  - Shock haemorrhagic [Fatal]
  - Hyperkalaemia [Fatal]
  - Acute kidney injury [Fatal]
  - Lactic acidosis [Fatal]
  - Death [Fatal]

NARRATIVE: CASE EVENT DATE: 20171025
